FAERS Safety Report 26034346 (Version 2)
Quarter: 2025Q4

REPORT INFORMATION
  Report Type: Spontaneous
  Country: US (occurrence: US)
  Receive Date: 20251112
  Receipt Date: 20251121
  Transmission Date: 20260118
  Serious: No
  Sender: Kenvue
  Company Number: US-ACCREDO-jfcb-20251023231021

PATIENT
  Sex: Female
  Weight: 72.562 kg

DRUGS (5)
  1. TYLENOL [Suspect]
     Active Substance: ACETAMINOPHEN
     Indication: Pain
     Route: 065
  2. TYLENOL [Suspect]
     Active Substance: ACETAMINOPHEN
     Indication: Headache
  3. TADALAFIL [Concomitant]
     Active Substance: TADALAFIL
     Indication: Product used for unknown indication
     Route: 065
  4. AMBRISENTAN [Concomitant]
     Active Substance: AMBRISENTAN
     Indication: Product used for unknown indication
     Route: 065
  5. UPTRAVI [Concomitant]
     Active Substance: SELEXIPAG
     Indication: Product used for unknown indication
     Dosage: 200MCG

REACTIONS (1)
  - Drug ineffective [Unknown]
